FAERS Safety Report 6138347-3 (Version None)
Quarter: 2009Q1

REPORT INFORMATION
  Report Type: 
  Country: None (occurrence: None)
  Receive Date: 20090327
  Receipt Date: 20090327
  Transmission Date: 20090719
  Serious: Yes (Other)
  Sender: FDA-Public Use
  Company Number: None

PATIENT
  Age: 57 Year
  Sex: Female
  Weight: 110.6777 kg

DRUGS (1)
  1. DIPHENHYDRAMINE 50MG MAJOR PHARMACEUTICALS [Suspect]
     Indication: INSOMNIA
     Dosage: 50MG  AT NIGHT PO
     Route: 048
     Dates: start: 20090321, end: 20090325

REACTIONS (1)
  - URTICARIA [None]
